FAERS Safety Report 18889905 (Version 2)
Quarter: 2021Q1

REPORT INFORMATION
  Report Type: Spontaneous
  Country: ID (occurrence: ID)
  Receive Date: 20210213
  Receipt Date: 20210222
  Transmission Date: 20210420
  Serious: Yes (Hospitalization, Other)
  Sender: FDA-Public Use
  Company Number: ID-SA-2021SA035192

PATIENT
  Age: 44 Year
  Sex: Female

DRUGS (4)
  1. DOCETAXEL. [Suspect]
     Active Substance: DOCETAXEL
     Indication: BREAST CANCER STAGE III
     Dosage: UNK UNK, QCY
  2. DOCETAXEL. [Suspect]
     Active Substance: DOCETAXEL
     Indication: INVASIVE BREAST CARCINOMA
  3. DOXORUBICIN [Concomitant]
     Active Substance: DOXORUBICIN
     Indication: INVASIVE BREAST CARCINOMA
  4. DOXORUBICIN [Concomitant]
     Active Substance: DOXORUBICIN
     Indication: BREAST CANCER STAGE III

REACTIONS (11)
  - Skin ulcer [Unknown]
  - C-reactive protein increased [Unknown]
  - Necrotising fasciitis [Unknown]
  - Soft tissue swelling [Unknown]
  - Disease progression [Unknown]
  - Oedema peripheral [Unknown]
  - Pain in extremity [Unknown]
  - Blister [Unknown]
  - Red blood cell sedimentation rate increased [Unknown]
  - Myositis [Unknown]
  - Muscle necrosis [Unknown]
